FAERS Safety Report 20464508 (Version 1)
Quarter: 2022Q1

REPORT INFORMATION
  Report Type: Spontaneous
  Country: US (occurrence: US)
  Receive Date: 20220211
  Receipt Date: 20220211
  Transmission Date: 20220423
  Serious: Yes (Other)
  Sender: FDA-Public Use
  Company Number: US-NOVARTISPH-NVSC2022US031629

PATIENT
  Age: 58 Year
  Sex: Female

DRUGS (4)
  1. RANITIDINE [Suspect]
     Active Substance: RANITIDINE
     Dosage: 300 MG,,,OTHER,I TOOK RANITIDINE TWICE DAILY
     Route: 048
     Dates: start: 200804, end: 201910
  2. RANITIDINE [Suspect]
     Active Substance: RANITIDINE
     Indication: Dyspepsia
  3. RANITIDINE [Suspect]
     Active Substance: RANITIDINE
     Dosage: 300 MG,,,OTHER,I TOOK RANITIDINE TWICE DAILY
     Route: 048
     Dates: start: 200804, end: 201910
  4. RANITIDINE [Suspect]
     Active Substance: RANITIDINE
     Indication: Dyspepsia

REACTIONS (1)
  - Renal cancer [Unknown]

NARRATIVE: CASE EVENT DATE: 20200401
